FAERS Safety Report 5014789-4 (Version None)
Quarter: 2006Q2

REPORT INFORMATION
  Report Type: 
  Country: None (occurrence: None)
  Receive Date: 20060424
  Receipt Date: 20050823
  Transmission Date: 20061013
  Serious: Yes (Other)
  Sender: FDA-Public Use
  Company Number: WAES 0508USA04039

PATIENT
  Age: 50 Year
  Sex: Female

DRUGS (2)
  1. SINGULAIR [Suspect]
     Dosage: 10 MG/DAILY/PO
     Route: 048
  2. [THERAPY UNSPECIFIED] [Concomitant]

REACTIONS (2)
  - ADVERSE EVENT [None]
  - LIVER FUNCTION TEST ABNORMAL [None]
